FAERS Safety Report 5010351-8 (Version None)
Quarter: 2006Q2

REPORT INFORMATION
  Report Type: 
  Country: None (occurrence: None)
  Receive Date: 20060522
  Receipt Date: 20060508
  Transmission Date: 20061013
  Serious: Yes (Hospitalization, Other)
  Sender: FDA-Public Use
  Company Number: HQWYE258305NOV04

PATIENT
  Age: 64 Year
  Sex: Female
  Weight: 113.05 kg

DRUGS (3)
  1. PREMPRO [Suspect]
  2. PREMARIN [Suspect]
  3. PROVERA [Suspect]

REACTIONS (5)
  - BREAST CANCER [None]
  - BREAST CANCER RECURRENT [None]
  - OESTROGEN RECEPTOR ASSAY POSITIVE [None]
  - POSTOPERATIVE WOUND COMPLICATION [None]
  - PROGESTERONE RECEPTOR ASSAY POSITIVE [None]
